FAERS Safety Report 21681383 (Version 2)
Quarter: 2022Q4

REPORT INFORMATION
  Report Type: Spontaneous
  Country: GB (occurrence: GB)
  Receive Date: 20221205
  Receipt Date: 20221219
  Transmission Date: 20230113
  Serious: Yes (Hospitalization)
  Sender: FDA-Public Use
  Company Number: GB-MYLANLABS-2022M1082123

PATIENT
  Sex: Female

DRUGS (6)
  1. CLOZARIL [Suspect]
     Active Substance: CLOZAPINE
     Indication: Schizophrenia
     Dosage: UNK
     Route: 048
     Dates: start: 20150226, end: 20220923
  2. CLOZARIL [Suspect]
     Active Substance: CLOZAPINE
     Dosage: UNK, 100 MG AM,200 MG PM
     Route: 048
  3. NAV [Concomitant]
     Dosage: 400 MG AM, 400 MG PM
     Route: 065
  4. ARIPIPRAZOLE [Concomitant]
     Active Substance: ARIPIPRAZOLE
     Dosage: 5 MG AM, 5 MG PM
     Route: 065
  5. PAROXETINE [Concomitant]
     Active Substance: PAROXETINE
     Dosage: 20 MG AM, 10 MG PM
     Route: 065
  6. FEXOFENADINE [Concomitant]
     Active Substance: FEXOFENADINE HYDROCHLORIDE
     Dosage: 120 MILLIGRAM, AM
     Route: 065

REACTIONS (3)
  - Hospitalisation [Recovered/Resolved]
  - Drug monitoring procedure incorrectly performed [Unknown]
  - Treatment noncompliance [Unknown]
